FAERS Safety Report 21579415 (Version 3)
Quarter: 2025Q3

REPORT INFORMATION
  Report Type: Spontaneous
  Country: CA (occurrence: CA)
  Receive Date: 20221110
  Receipt Date: 20250716
  Transmission Date: 20251020
  Serious: Yes (Death, Other)
  Sender: NOVARTIS
  Company Number: CA-002147023-NVSC2022CA253122

PATIENT
  Age: 74 Year
  Sex: Male

DRUGS (8)
  1. CYCLOSPORINE [Suspect]
     Active Substance: CYCLOSPORINE
     Indication: Pure white cell aplasia
     Dosage: 200 MG, QD, 100 MG, BID (2 EVERY 1 DAYS)
     Route: 065
  2. CYCLOSPORINE [Suspect]
     Active Substance: CYCLOSPORINE
     Indication: Febrile neutropenia
     Dosage: 100 MG, BID 950 MG, BID (2 EVERY 1 DAYS)  )
     Route: 065
  3. FILGRASTIM [Suspect]
     Active Substance: FILGRASTIM
     Indication: Pure white cell aplasia
     Route: 058
  4. FILGRASTIM [Suspect]
     Active Substance: FILGRASTIM
     Indication: Febrile neutropenia
     Route: 065
  5. DANAZOL [Suspect]
     Active Substance: DANAZOL
     Indication: Pure white cell aplasia
     Dosage: 400 MG, QD 200 MG, BID (2 EVERY 1 DAYS)
     Route: 065
  6. DANAZOL [Suspect]
     Active Substance: DANAZOL
     Indication: Cytopenia
     Route: 065
  7. DAPSONE [Suspect]
     Active Substance: DAPSONE
     Indication: Pure white cell aplasia
     Dosage: 100 MG, QD (1 EVERY 1 DAY)
     Route: 065
  8. DAPSONE [Suspect]
     Active Substance: DAPSONE
     Indication: Cytopenia
     Route: 065

REACTIONS (4)
  - Multiple organ dysfunction syndrome [Fatal]
  - Sepsis [Fatal]
  - Thrombocytopenia [Fatal]
  - Drug ineffective [Fatal]
